FAERS Safety Report 9877481 (Version 1)
Quarter: 2014Q1

REPORT INFORMATION
  Report Type: Other
  Country: US (occurrence: US)
  Receive Date: 20140206
  Receipt Date: 20140206
  Transmission Date: 20141002
  Serious: Yes (Hospitalization)
  Sender: FDA-Public Use
  Company Number: US-ACORDA-ACO_38439_2013

PATIENT
  Sex: Female

DRUGS (7)
  1. AMPYRA [Suspect]
     Indication: MULTIPLE SCLEROSIS
     Dosage: 10 MG, Q 12 HRS
     Route: 048
     Dates: start: 201010, end: 20130823
  2. REBIF [Concomitant]
     Indication: MULTIPLE SCLEROSIS
     Dosage: 3 TIMES A WEEK
     Route: 058
  3. BACLOFEN [Concomitant]
     Indication: MUSCLE SPASMS
     Dosage: 10 MG, TID
     Route: 048
  4. NEURONTIN [Concomitant]
     Indication: NEUROPATHY PERIPHERAL
     Dosage: 900 MG, BID
     Route: 048
  5. OMEPRAZOLE [Concomitant]
     Indication: GASTROOESOPHAGEAL REFLUX DISEASE
     Dosage: 40 MG, BID
     Route: 048
  6. AMANTADINE [Concomitant]
     Indication: COORDINATION ABNORMAL
     Dosage: 100 MG, BID
     Route: 048
  7. ZAROXOLYN [Concomitant]
     Indication: DIURETIC THERAPY
     Dosage: 2.5 MG, QD
     Route: 048

REACTIONS (2)
  - Multiple sclerosis relapse [Recovering/Resolving]
  - Vaginal infection [Recovering/Resolving]
